FAERS Safety Report 7857273-2 (Version None)
Quarter: 2011Q4

REPORT INFORMATION
  Report Type: 
  Country: None (occurrence: None)
  Receive Date: 20111027
  Receipt Date: 20111013
  Transmission Date: 20120403
  Serious: Yes (Hospitalization)
  Sender: FDA-Public Use
  Company Number: FR-AMGEN-FRACT2010007466

PATIENT
  Age: 10 Year
  Sex: Male

DRUGS (2)
  1. ETANERCEPT [Suspect]
     Indication: JUVENILE ARTHRITIS
     Dosage: 0.8 MG/KG WEEKLY
     Route: 058
     Dates: start: 20091209, end: 20101110
  2. ETANERCEPT [Suspect]
     Dosage: 0.8 MG/KG, UNK
     Route: 058
     Dates: start: 20101222

REACTIONS (2)
  - INFECTIOUS PERITONITIS [None]
  - APPENDICITIS [None]
